FAERS Safety Report 15771884 (Version 3)
Quarter: 2019Q1

REPORT INFORMATION
  Report Type: Spontaneous
  Country: JP (occurrence: JP)
  Receive Date: 20181228
  Receipt Date: 20190204
  Transmission Date: 20190417
  Serious: Yes (Life-Threatening, Hospitalization)
  Sender: FDA-Public Use
  Company Number: JP-OTSUKA-2018_040391AA

PATIENT
  Sex: Female

DRUGS (7)
  1. ATEDIO [Concomitant]
     Indication: PRODUCT USED FOR UNKNOWN INDICATION
     Dosage: 1 TABLET, ABOUT 1 MONTH
     Route: 048
  2. PREDNISOLONE. [Concomitant]
     Active Substance: PREDNISOLONE
     Indication: PRODUCT USED FOR UNKNOWN INDICATION
     Dosage: 7MG, ABOUT 5 YEARS
     Route: 048
  3. SAMSCA [Suspect]
     Active Substance: TOLVAPTAN
     Indication: CONGENITAL CYSTIC KIDNEY DISEASE
     Dosage: 60/DAY
     Route: 048
     Dates: start: 20181206
  4. EDIROL [Concomitant]
     Active Substance: ELDECALCITOL
     Indication: PRODUCT USED FOR UNKNOWN INDICATION
     Dosage: 0.5 MICRO, ABOUT 5 YEARS
     Route: 048
  5. PARIET [Concomitant]
     Active Substance: RABEPRAZOLE SODIUM
     Indication: PRODUCT USED FOR UNKNOWN INDICATION
     Dosage: 10 MG, ABOUT 5 YEARS
     Route: 048
  6. PROGRAF [Concomitant]
     Active Substance: TACROLIMUS\TACROLIMUS ANHYDROUS
     Indication: PRODUCT USED FOR UNKNOWN INDICATION
     Dosage: 1MG, 2 C, ABOUT 5 YEARS
     Route: 048
  7. MUCOSTA TABLETS 100MG [Concomitant]
     Active Substance: REBAMIPIDE
     Indication: PRODUCT USED FOR UNKNOWN INDICATION
     Dosage: 200MG, 2 X, ABOUT 5 YEARS
     Route: 048

REACTIONS (1)
  - Aortic dissection [Recovered/Resolved]

NARRATIVE: CASE EVENT DATE: 20181219
